FAERS Safety Report 9254813 (Version 3)
Quarter: 2013Q2

REPORT INFORMATION
  Report Type: Spontaneous
  Country: IT (occurrence: None)
  Receive Date: 20130422
  Receipt Date: 20130610
  Transmission Date: 20140414
  Serious: Yes (Other)
  Sender: FDA-Public Use
  Company Number: 1678445

PATIENT
  Age: 85 Year
  Sex: Male

DRUGS (2)
  1. PAMIDRONIC ACID [Suspect]
     Indication: SUPPORTIVE CARE
     Dosage: TOTAL
     Route: 041
     Dates: start: 20120405, end: 20130207
  2. (SUTENT) [Concomitant]

REACTIONS (6)
  - Glomerulonephritis membranous [None]
  - Nephrotic syndrome [None]
  - Hypertransaminasaemia [None]
  - Aspartate aminotransferase increased [None]
  - Alanine aminotransferase increased [None]
  - Renal failure chronic [None]
